FAERS Safety Report 15969281 (Version 5)
Quarter: 2019Q1

REPORT INFORMATION
  Report Type: Report from Study
  Country: JP (occurrence: JP)
  Receive Date: 20190215
  Receipt Date: 20190321
  Transmission Date: 20190418
  Serious: Yes (Hospitalization)
  Sender: FDA-Public Use
  Company Number: JP-EISAI MEDICAL RESEARCH-EC-2019-052137

PATIENT
  Age: 69 Year
  Sex: Male
  Weight: 63 kg

DRUGS (7)
  1. PIARLE [Concomitant]
  2. MYSER [Concomitant]
  3. DORAL [Concomitant]
     Active Substance: QUAZEPAM
  4. NIVOLUMAB [Suspect]
     Active Substance: NIVOLUMAB
     Indication: HEPATOCELLULAR CARCINOMA
     Route: 041
     Dates: start: 20180827, end: 20190115
  5. BESOFTEN [Concomitant]
     Active Substance: PENTOSAN POLYSULFATE SODIUM
  6. LENVATINIB [Suspect]
     Active Substance: LENVATINIB
     Indication: HEPATOCELLULAR CARCINOMA
     Route: 048
     Dates: start: 20180827, end: 20190211
  7. HEPAACT [Concomitant]

REACTIONS (2)
  - Ligament sprain [Recovered/Resolved]
  - Adrenocorticotropic hormone deficiency [Recovering/Resolving]

NARRATIVE: CASE EVENT DATE: 20190212
